FAERS Safety Report 10627308 (Version 3)
Quarter: 2015Q1

REPORT INFORMATION
  Report Type: Spontaneous
  Country: US (occurrence: US)
  Receive Date: 20141204
  Receipt Date: 20150305
  Transmission Date: 20150720
  Serious: Yes (Death, Hospitalization, Other)
  Sender: FDA-Public Use
  Company Number: US-ASTELLAS-2014US018982

PATIENT
  Age: 64 Year
  Sex: Male

DRUGS (9)
  1. XGEVA [Concomitant]
     Active Substance: DENOSUMAB
     Dosage: UNK, UNKNOWN FREQ.
     Route: 065
     Dates: start: 20140507
  2. XGEVA [Concomitant]
     Active Substance: DENOSUMAB
     Dosage: UNK, UNKNOWN FREQ.
     Route: 065
     Dates: start: 20140311
  3. XGEVA [Concomitant]
     Active Substance: DENOSUMAB
     Dosage: UNK, UNKNOWN FREQ.
     Route: 065
     Dates: start: 20140702
  4. LUPRON [Concomitant]
     Active Substance: LEUPROLIDE ACETATE
     Route: 030
     Dates: start: 20130306
  5. XTANDI [Suspect]
     Active Substance: ENZALUTAMIDE
     Indication: PROSTATE CANCER
     Route: 048
     Dates: start: 20140311, end: 20141117
  6. LUPRON [Concomitant]
     Active Substance: LEUPROLIDE ACETATE
     Indication: PROSTATE CANCER
     Dosage: UNK UNK, EVERY 3 MONTHS
     Route: 065
     Dates: start: 20110523
  7. XGEVA [Concomitant]
     Active Substance: DENOSUMAB
     Dosage: UNK, UNKNOWN FREQ.
     Route: 065
     Dates: start: 20140730
  8. LUPRON [Concomitant]
     Active Substance: LEUPROLIDE ACETATE
     Dosage: UNK, UNKNOWN FREQ.
     Route: 065
     Dates: start: 20140311
  9. XGEVA [Concomitant]
     Active Substance: DENOSUMAB
     Indication: PROSTATE CANCER
     Dosage: UNK UNK, EVERY 4 WEEKS
     Route: 065
     Dates: start: 20131014

REACTIONS (5)
  - Acute kidney injury [Unknown]
  - Prostate cancer metastatic [Fatal]
  - Metastases to bone [Fatal]
  - Hydronephrosis [Unknown]
  - Metastases to liver [Unknown]

NARRATIVE: CASE EVENT DATE: 20140723
